FAERS Safety Report 19040900 (Version 4)
Quarter: 2021Q2

REPORT INFORMATION
  Report Type: Report from Study
  Country: CA (occurrence: CA)
  Receive Date: 20210322
  Receipt Date: 20210429
  Transmission Date: 20210717
  Serious: Yes (Hospitalization, Other)
  Sender: FDA-Public Use
  Company Number: CA-SAMSUNG BIOEPIS-SB-2021-06913

PATIENT
  Age: 22 Year
  Sex: Female
  Weight: 66 kg

DRUGS (2)
  1. METHOTREXATE. [Concomitant]
     Active Substance: METHOTREXATE
     Indication: PRODUCT USED FOR UNKNOWN INDICATION
     Dosage: UNKNOWN
     Route: 065
  2. RENFLEXIS [Suspect]
     Active Substance: INFLIXIMAB-ABDA
     Indication: ANKYLOSING SPONDYLITIS
     Dosage: WEEK ZERO, VIALS
     Route: 042
     Dates: start: 20210309, end: 20210309

REACTIONS (10)
  - Pruritus [Unknown]
  - Headache [Unknown]
  - Musculoskeletal stiffness [Unknown]
  - Rash pruritic [Unknown]
  - Throat tightness [Unknown]
  - Ill-defined disorder [Unknown]
  - Hypersensitivity [Unknown]
  - Asthma [Unknown]
  - Rash [Unknown]
  - Urticaria [Unknown]

NARRATIVE: CASE EVENT DATE: 20210309
